FAERS Safety Report 16617015 (Version 1)
Quarter: 2019Q3

REPORT INFORMATION
  Report Type: Spontaneous
  Country: US (occurrence: US)
  Receive Date: 20190610
  Receipt Date: 20190610
  Transmission Date: 20191004
  Serious: Yes (Hospitalization)
  Sender: FDA-Public Use
  Company Number: None

PATIENT
  Age: 60 Year
  Sex: Female

DRUGS (12)
  1. HUMIRA [Suspect]
     Active Substance: ADALIMUMAB
     Indication: RHEUMATOID ARTHRITIS
     Route: 058
     Dates: start: 20160619
  2. SIMVASTATIN. [Concomitant]
     Active Substance: SIMVASTATIN
  3. ARMODAFINIL. [Concomitant]
     Active Substance: ARMODAFINIL
  4. CEPHALEXIN. [Concomitant]
     Active Substance: CEPHALEXIN
  5. INSULIN SYRG MIS [Concomitant]
  6. MELOXICAM. [Concomitant]
     Active Substance: MELOXICAM
  7. FOLIC ACID. [Concomitant]
     Active Substance: FOLIC ACID
  8. CYANOCOBALAM [Concomitant]
     Active Substance: CYANOCOBALAMIN
  9. HUMIRA [Concomitant]
     Active Substance: ADALIMUMAB
  10. OXYCODONE [Concomitant]
     Active Substance: OXYCODONE
  11. SYMBICORT AER [Concomitant]
  12. TELMISARTAN. [Concomitant]
     Active Substance: TELMISARTAN

REACTIONS (3)
  - Loss of personal independence in daily activities [None]
  - Musculoskeletal stiffness [None]
  - Product dose omission [None]

NARRATIVE: CASE EVENT DATE: 201905
